FAERS Safety Report 6993284-7 (Version None)
Quarter: 2010Q3

REPORT INFORMATION
  Report Type: 
  Country: None (occurrence: None)
  Receive Date: 20100917
  Receipt Date: 20100720
  Transmission Date: 20110219
  Serious: Yes (Other)
  Sender: FDA-Public Use
  Company Number: US-ASTRAZENECA-2010SE34000

PATIENT
  Age: 37 Year
  Sex: Female

DRUGS (2)
  1. SEROQUEL [Suspect]
     Route: 048
  2. SEROQUEL [Suspect]
     Dosage: SHE TOOK 6 TABLETS
     Route: 048

REACTIONS (2)
  - INCORRECT DOSE ADMINISTERED [None]
  - SUICIDE ATTEMPT [None]
